FAERS Safety Report 9665996 (Version 2)
Quarter: 2013Q4

REPORT INFORMATION
  Report Type: Spontaneous
  Country: US (occurrence: US)
  Receive Date: 20131104
  Receipt Date: 20131113
  Transmission Date: 20140711
  Serious: No
  Sender: FDA-Public Use
  Company Number: US-BAXTER-2013BAX041187

PATIENT
  Age: 48 Year
  Sex: Female

DRUGS (2)
  1. EXTRANEAL [Suspect]
     Indication: RENAL FAILURE CHRONIC
     Route: 033
     Dates: start: 2013
  2. EXTRANEAL [Suspect]
     Route: 033
     Dates: start: 2013

REACTIONS (2)
  - Blood glucose abnormal [Unknown]
  - Fluid overload [Recovering/Resolving]
